FAERS Safety Report 24986180 (Version 1)
Quarter: 2025Q1

REPORT INFORMATION
  Report Type: Spontaneous
  Country: CN (occurrence: CN)
  Receive Date: 20250219
  Receipt Date: 20250219
  Transmission Date: 20250408
  Serious: Yes (Hospitalization, Other)
  Sender: PFIZER
  Company Number: CN-PFIZER INC-PV202500018069

PATIENT
  Age: 47 Year
  Sex: Male
  Weight: 69 kg

DRUGS (1)
  1. CYTARABINE [Suspect]
     Active Substance: CYTARABINE
     Indication: Acute myeloid leukaemia
     Dosage: 4.5 G, 2X/DAY
     Route: 041
     Dates: start: 20250114, end: 20250119

REACTIONS (5)
  - Myelosuppression [Recovering/Resolving]
  - Pneumonia [Recovering/Resolving]
  - Rib fracture [Unknown]
  - Hepatic calcification [Unknown]
  - Splenomegaly [Unknown]

NARRATIVE: CASE EVENT DATE: 20250129
